FAERS Safety Report 19190389 (Version 4)
Quarter: 2021Q4

REPORT INFORMATION
  Report Type: Report from Study
  Country: FR (occurrence: FR)
  Receive Date: 20210428
  Receipt Date: 20211223
  Transmission Date: 20220303
  Serious: Yes (Hospitalization)
  Sender: FDA-Public Use
  Company Number: FR-JNJFOC-20210319514

PATIENT
  Age: 54 Year
  Sex: Male
  Weight: 82 kg

DRUGS (15)
  1. SPRAVATO [Suspect]
     Active Substance: ESKETAMINE
     Indication: Depression
     Dosage: 56 MG, 16 TOTAL DOSES
     Dates: start: 20200504, end: 20200819
  2. SPRAVATO [Suspect]
     Active Substance: ESKETAMINE
     Dosage: 84 MG, 17 TOTAL DOSES
     Dates: start: 20200904, end: 20201204
  3. SPRAVATO [Suspect]
     Active Substance: ESKETAMINE
     Dosage: 56 MG, 1 TOTAL DOSE
     Dates: start: 20201207, end: 20201207
  4. SPRAVATO [Suspect]
     Active Substance: ESKETAMINE
     Dosage: 28 MG, 10 TOTAL DOSES
     Dates: start: 20201211, end: 20210201
  5. SPRAVATO [Suspect]
     Active Substance: ESKETAMINE
     Dosage: 56 MG, 9 TOTAL DOSES
     Dates: start: 20210208, end: 20210421
  6. SPRAVATO [Suspect]
     Active Substance: ESKETAMINE
     Dosage: 84 MG, 1 TOTAL DOSE
     Dates: start: 20210428, end: 20210428
  7. SPRAVATO [Suspect]
     Active Substance: ESKETAMINE
     Dosage: 56 MG, 6 TOTAL DOSES
     Dates: start: 20210505, end: 20210521
  8. SPRAVATO [Suspect]
     Active Substance: ESKETAMINE
     Dosage: 84 MG, 6 TOTAL DOSES
     Dates: start: 20210528, end: 20210630
  9. NARDIL [Concomitant]
     Active Substance: PHENELZINE SULFATE
     Indication: Antidepressant therapy
     Dates: start: 20200323, end: 20200917
  10. LITHIUM [Concomitant]
     Active Substance: LITHIUM
     Indication: Potentiating drug interaction
     Route: 048
     Dates: start: 20200323
  11. THYROID T3 [Concomitant]
     Indication: Potentiating drug interaction
     Dates: start: 20200302, end: 20200610
  12. PREGABALIN [Concomitant]
     Active Substance: PREGABALIN
     Indication: Anxiety disorder
     Route: 048
     Dates: start: 20180911
  13. SELEGILINE [Concomitant]
     Active Substance: SELEGILINE
     Indication: Antidepressant therapy
     Dates: start: 20201022
  14. QUETIAPINE [Concomitant]
     Active Substance: QUETIAPINE
     Indication: Potentiating drug interaction
     Route: 065
     Dates: start: 20210329
  15. PHENELZINE [Concomitant]
     Active Substance: PHENELZINE
     Indication: Product used for unknown indication
     Route: 048

REACTIONS (2)
  - Drug ineffective [Recovered/Resolved]
  - Confusional state [Recovered/Resolved]

NARRATIVE: CASE EVENT DATE: 20200904
